FAERS Safety Report 16896977 (Version 2)
Quarter: 2019Q4

REPORT INFORMATION
  Report Type: Report from Study
  Country: US (occurrence: US)
  Receive Date: 20191009
  Receipt Date: 20191028
  Transmission Date: 20200122
  Serious: No
  Sender: FDA-Public Use
  Company Number: US-SHIRE-US201933095

PATIENT
  Sex: Female
  Weight: 52.15 kg

DRUGS (2)
  1. TPN [AMINO ACIDS NOS;CARBOHYDRATES NOS;MINERALS NOS;VITAMINS NOS] [Concomitant]
     Active Substance: AMINO ACIDS\CARBOHYDRATES\MINERALS\VITAMINS
     Indication: PRODUCT USED FOR UNKNOWN INDICATION
  2. GATTEX [Suspect]
     Active Substance: TEDUGLUTIDE\WATER
     Indication: MALABSORPTION
     Dosage: 0.2055, 1X/DAY:QD
     Route: 058
     Dates: start: 20190204

REACTIONS (2)
  - Urinary tract infection [Unknown]
  - Weight increased [Unknown]
